FAERS Safety Report 18179706 (Version 1)
Quarter: 2020Q3

REPORT INFORMATION
  Report Type: Spontaneous
  Country: CN (occurrence: CN)
  Receive Date: 20200821
  Receipt Date: 20200821
  Transmission Date: 20201103
  Serious: Yes (Death, Life-Threatening, Other)
  Sender: FDA-Public Use
  Company Number: CN-ACCORD-196982

PATIENT
  Age: 73 Year
  Sex: Male

DRUGS (3)
  1. CARBOPLATIN. [Suspect]
     Active Substance: CARBOPLATIN
     Indication: SARCOMATOID CARCINOMA OF THE LUNG
     Dosage: D1 Q21D
     Dates: start: 20180605
  2. PACLITAXEL. [Suspect]
     Active Substance: PACLITAXEL
     Indication: SARCOMATOID CARCINOMA OF THE LUNG
     Dosage: D1 Q21D
     Dates: start: 20180605
  3. MORPHINE [Concomitant]
     Active Substance: MORPHINE
     Indication: PAIN
     Dosage: SUSTAINED?RELEASE
     Route: 048
     Dates: start: 201806

REACTIONS (4)
  - Nausea [Unknown]
  - Drug intolerance [Unknown]
  - Leukopenia [Unknown]
  - Vomiting [Unknown]

NARRATIVE: CASE EVENT DATE: 201806
